FAERS Safety Report 7623486-8 (Version None)
Quarter: 2011Q3

REPORT INFORMATION
  Report Type: 
  Country: None (occurrence: None)
  Receive Date: 20110720
  Receipt Date: 20110714
  Transmission Date: 20111222
  Serious: Yes (Life-Threatening, Hospitalization)
  Sender: FDA-Public Use
  Company Number: PHHY2011GB63215

PATIENT
  Age: 57 Year
  Sex: Male

DRUGS (10)
  1. DEXAMETHASONE [Suspect]
     Indication: PROPHYLAXIS
     Dosage: 8 MG, UNK
     Route: 042
  2. LANSOPRAZOLE [Concomitant]
  3. PROPOFOL [Suspect]
     Dosage: 200 MG, UNK
     Route: 042
     Dates: start: 20110620
  4. LEVOBUPIVACAINE [Suspect]
     Indication: NERVE BLOCK
     Dosage: 150 MG, UNK
     Dates: start: 20110620
  5. VENTOLIN HFA [Concomitant]
  6. GENTAMICIN [Suspect]
     Indication: PROPHYLAXIS
     Dosage: 120 MG, UNK
     Route: 042
  7. CHLORHEXIDINE GLUCONATE [Suspect]
     Dosage: UNK UKN, UNK
     Route: 061
     Dates: start: 20110620
  8. FENTANYL [Suspect]
     Dosage: 1 MG, UNK
     Route: 042
     Dates: start: 20110620
  9. TEICOPLANIN [Suspect]
     Indication: PROPHYLAXIS
     Dosage: 400 MG, UNK
     Route: 042
     Dates: start: 20110620
  10. PREDNISOLONE [Concomitant]
     Indication: RASH

REACTIONS (5)
  - ANAPHYLACTIC REACTION [None]
  - HYPOTENSION [None]
  - ERYTHEMA [None]
  - WHEEZING [None]
  - TACHYCARDIA [None]
